FAERS Safety Report 16755565 (Version 2)
Quarter: 2019Q3

REPORT INFORMATION
  Report Type: Spontaneous
  Country: EG (occurrence: EG)
  Receive Date: 20190829
  Receipt Date: 20190905
  Transmission Date: 20191005
  Serious: Yes (Other)
  Sender: FDA-Public Use
  Company Number: PHHY2019EG197375

PATIENT
  Age: 53 Year
  Sex: Male

DRUGS (3)
  1. 5-FLUOROURACIL [Suspect]
     Active Substance: FLUOROURACIL
     Indication: COLON CANCER
     Dosage: 600 MG/M2, QD (FOR 2 DAYS)
     Route: 042
  2. FOLINIC ACID [Suspect]
     Active Substance: LEUCOVORIN
     Indication: SUPPORTIVE CARE
     Dosage: UNK UNK, Q2W (FOR 4 MONTHS)
     Route: 065
  3. OXALIPLATIN. [Suspect]
     Active Substance: OXALIPLATIN
     Indication: COLON CANCER
     Dosage: 85 MG/M2, Q2W (FOR 4 MONTHS AND EVERY 2 WEEKS FOR 12 CYCLES)
     Route: 042

REACTIONS (4)
  - Visual impairment [Unknown]
  - Cataract nuclear [Unknown]
  - Optic ischaemic neuropathy [Unknown]
  - Optic disc drusen [Unknown]
